FAERS Safety Report 6678520-9 (Version None)
Quarter: 2010Q2

REPORT INFORMATION
  Report Type: 
  Country: None (occurrence: None)
  Receive Date: 20100413
  Receipt Date: 20100402
  Transmission Date: 20101027
  Serious: No
  Sender: FDA-Public Use
  Company Number: 2009BI030587

PATIENT
  Sex: Female

DRUGS (1)
  1. TYSABRI [Suspect]
     Indication: MULTIPLE SCLEROSIS
     Route: 042
     Dates: start: 20080318

REACTIONS (5)
  - DRUG INEFFECTIVE [None]
  - FALL [None]
  - JOINT INJURY [None]
  - PARAESTHESIA [None]
  - VIRAL INFECTION [None]
